FAERS Safety Report 6922899-7 (Version None)
Quarter: 2010Q3

REPORT INFORMATION
  Report Type: 
  Country: None (occurrence: None)
  Receive Date: 20100813
  Receipt Date: 20100804
  Transmission Date: 20110219
  Serious: Yes (Hospitalization)
  Sender: FDA-Public Use
  Company Number: JP-ASTRAZENECA-2010SE36862

PATIENT
  Age: 61 Year
  Sex: Female

DRUGS (3)
  1. BLOPRESS [Suspect]
     Indication: HYPERTENSION
     Route: 048
     Dates: start: 20090930
  2. ALLEGRA [Concomitant]
     Route: 048
     Dates: start: 20091101
  3. ALLEGRA [Concomitant]
     Route: 048
     Dates: start: 20100120, end: 20100512

REACTIONS (1)
  - INTERSTITIAL LUNG DISEASE [None]
